FAERS Safety Report 5134399-8 (Version None)
Quarter: 2006Q4

REPORT INFORMATION
  Report Type: 
  Country: None (occurrence: None)
  Receive Date: 20061025
  Receipt Date: 20061010
  Transmission Date: 20070319
  Serious: Yes (Hospitalization)
  Sender: FDA-Public Use
  Company Number: US-AMGEN-KDL190868

PATIENT
  Sex: Male

DRUGS (2)
  1. ENBREL [Suspect]
     Indication: PSORIASIS
  2. ENBREL [Suspect]
     Indication: ARTHRITIS

REACTIONS (4)
  - ARTHRITIS [None]
  - CONDITION AGGRAVATED [None]
  - MENTAL DISORDER [None]
  - PSORIASIS [None]
